FAERS Safety Report 23373803 (Version 1)
Quarter: 2024Q1

REPORT INFORMATION
  Report Type: Spontaneous
  Country: US (occurrence: US)
  Receive Date: 20240105
  Receipt Date: 20240105
  Transmission Date: 20240410
  Serious: Yes (Other)
  Sender: FDA-Public Use
  Company Number: US-COOPERSURGICAL, INC.-US-2023CPS000885

PATIENT
  Age: 26 Year
  Sex: Female
  Weight: 86.168 kg

DRUGS (2)
  1. PARAGARD T 380A [Suspect]
     Active Substance: COPPER
     Indication: Contraception
     Dosage: UNK
     Route: 015
     Dates: start: 201701
  2. ASPIRIN [Concomitant]
     Active Substance: ASPIRIN
     Indication: Product used for unknown indication
     Dosage: UNK
     Route: 065

REACTIONS (13)
  - Device breakage [Unknown]
  - Complication of device removal [Unknown]
  - Foreign body in reproductive tract [Unknown]
  - Device issue [Unknown]
  - Stress [Unknown]
  - Quality of life decreased [Unknown]
  - Emotional distress [Unknown]
  - Vulvovaginal discomfort [Unknown]
  - Device expulsion [Unknown]
  - Muscle spasms [Unknown]
  - Discomfort [Unknown]
  - Abnormal uterine bleeding [Unknown]
  - Pain [Unknown]

NARRATIVE: CASE EVENT DATE: 20221104
